FAERS Safety Report 25724647 (Version 2)
Quarter: 2025Q3

REPORT INFORMATION
  Report Type: Spontaneous
  Country: US (occurrence: US)
  Receive Date: 20250826
  Receipt Date: 20250909
  Transmission Date: 20251020
  Serious: Yes (Life-Threatening, Hospitalization)
  Sender: TEVA
  Company Number: US-TEVA-VS-3364468

PATIENT
  Age: 64 Year
  Sex: Female

DRUGS (2)
  1. TRANEXAMIC ACID [Suspect]
     Active Substance: TRANEXAMIC ACID
     Indication: Haemostasis
     Route: 065
  2. CEFTRIAXONE [Suspect]
     Active Substance: CEFTRIAXONE
     Indication: Streptococcal bacteraemia
     Route: 042

REACTIONS (7)
  - Thrombocytopenia [Recovering/Resolving]
  - Shock [Unknown]
  - Drug ineffective [Unknown]
  - Hypoxia [Unknown]
  - Haemoptysis [Unknown]
  - Cardiac arrest [Unknown]
  - Anaemia [Unknown]
